FAERS Safety Report 10081228 (Version 1)
Quarter: 2014Q2

REPORT INFORMATION
  Report Type: Spontaneous
  Country: US (occurrence: US)
  Receive Date: 20140416
  Receipt Date: 20140416
  Transmission Date: 20141212
  Serious: No
  Sender: FDA-Public Use
  Company Number: US-PFIZER INC-2014102670

PATIENT
  Sex: 0

DRUGS (2)
  1. LYRICA [Suspect]
     Dosage: 1000 MG, DAILY
  2. CYMBALTA [Suspect]
     Dosage: UNK

REACTIONS (5)
  - Intentional product misuse [Unknown]
  - Off label use [Unknown]
  - Weight increased [Unknown]
  - Oedema [Unknown]
  - Drug effect incomplete [Unknown]
